FAERS Safety Report 6440749-2 (Version None)
Quarter: 2009Q4

REPORT INFORMATION
  Report Type: 
  Country: None (occurrence: None)
  Receive Date: 20091116
  Receipt Date: 20091113
  Transmission Date: 20100525
  Serious: Yes (Other)
  Sender: FDA-Public Use
  Company Number: US-BAYER-200936982NA

PATIENT
  Sex: Male

DRUGS (4)
  1. AVELOX [Suspect]
     Indication: GINGIVAL INFECTION
     Dosage: TOTAL DAILY DOSE: 400 MG  UNIT DOSE: 400 MG
  2. LISINOPRIL [Concomitant]
  3. LASIX [Concomitant]
  4. SIMVASTATIN [Concomitant]

REACTIONS (4)
  - ANAPHYLACTIC REACTION [None]
  - DIZZINESS [None]
  - HYPOTENSION [None]
  - URTICARIA [None]
